FAERS Safety Report 5073545-1 (Version None)
Quarter: 2006Q3

REPORT INFORMATION
  Report Type: 
  Country: None (occurrence: None)
  Receive Date: 20060717
  Receipt Date: 20051227
  Transmission Date: 20061208
  Serious: No
  Sender: FDA-Public Use
  Company Number: 2005002446

PATIENT
  Age: 86 Year
  Sex: Male

DRUGS (1)
  1. TARCEVA (TABLET) (EFLOTINIB) [Suspect]
     Indication: NON-SMALL CELL LUNG CANCER
     Dosage: 150 MG (QD), ORAL
     Route: 048
     Dates: start: 20051001, end: 20051201

REACTIONS (7)
  - DIARRHOEA [None]
  - DRY MOUTH [None]
  - DRY SKIN [None]
  - RASH [None]
  - RASH PUSTULAR [None]
  - SWELLING FACE [None]
  - WEIGHT DECREASED [None]
